FAERS Safety Report 9265408 (Version 1)
Quarter: 2013Q2

REPORT INFORMATION
  Report Type: Spontaneous
  Country: FR (occurrence: FR)
  Receive Date: 20130501
  Receipt Date: 20130501
  Transmission Date: 20140414
  Serious: Yes (Hospitalization, Other)
  Sender: FDA-Public Use
  Company Number: FR-ASTRAZENECA-2013SE23166

PATIENT
  Age: 20252 Day
  Sex: Male
  Weight: 75 kg

DRUGS (7)
  1. CRESTOR [Suspect]
     Route: 048
     Dates: start: 20121016, end: 20121121
  2. CRESTOR [Suspect]
     Route: 048
     Dates: start: 20130107, end: 20130305
  3. CARDENSIEL [Concomitant]
  4. ODRIK [Concomitant]
  5. DUOPLAVIN [Concomitant]
  6. INEXIUM [Concomitant]
  7. INEGY [Concomitant]
     Dates: end: 20121016

REACTIONS (8)
  - Sciatica [Recovered/Resolved]
  - Presyncope [Recovered/Resolved]
  - Pyrexia [Recovered/Resolved]
  - Cough [Unknown]
  - Mental disorder [Unknown]
  - Disorientation [Unknown]
  - Asthenia [Unknown]
  - Depression [Unknown]
